FAERS Safety Report 9609207 (Version 3)
Quarter: 2013Q4

REPORT INFORMATION
  Report Type: Spontaneous
  Country: AU (occurrence: None)
  Receive Date: 20131007
  Receipt Date: 20131120
  Transmission Date: 20140711
  Serious: Yes (Life-Threatening, Hospitalization)
  Sender: FDA-Public Use
  Company Number: 2013AU009398

PATIENT
  Age: 55 Year
  Sex: Male
  Weight: 73 kg

DRUGS (3)
  1. ALOXI [Suspect]
     Indication: PROPHYLAXIS OF NAUSEA AND VOMITING
     Dosage: SINGLE
     Route: 042
     Dates: start: 20130925, end: 20130925
  2. MABTHERA [Concomitant]
     Dosage: SINGLE
     Route: 042
     Dates: start: 20130925, end: 20130925
  3. ALLOPURINOL (ALLOPURINOL) [Concomitant]

REACTIONS (5)
  - Dystonia [None]
  - Loss of consciousness [None]
  - Blood pressure decreased [None]
  - Muscle spasms [None]
  - Bradycardia [None]
